FAERS Safety Report 7603806-0 (Version None)
Quarter: 2011Q3

REPORT INFORMATION
  Report Type: 
  Country: None (occurrence: None)
  Receive Date: 20110712
  Receipt Date: 20110707
  Transmission Date: 20111222
  Serious: Yes (Life-Threatening)
  Sender: FDA-Public Use
  Company Number: US-GLAXOSMITHKLINE-A0936337A

PATIENT
  Age: 59 Year
  Sex: Male

DRUGS (1)
  1. HYCAMTIN [Suspect]
     Indication: SMALL CELL LUNG CANCER STAGE UNSPECIFIED
     Dosage: 4MG PER DAY
     Route: 048
     Dates: start: 20110517, end: 20110621

REACTIONS (1)
  - TREATMENT FAILURE [None]
